FAERS Safety Report 25552807 (Version 1)
Quarter: 2025Q3

REPORT INFORMATION
  Report Type: Spontaneous
  Country: JP (occurrence: JP)
  Receive Date: 20250715
  Receipt Date: 20250715
  Transmission Date: 20251021
  Serious: Yes (Death, Other)
  Sender: SANDOZ
  Company Number: JP-HEXAL-SDZ2023JP065996AA

PATIENT
  Age: 73 Year
  Sex: Female

DRUGS (4)
  1. CARBOPLATIN [Suspect]
     Active Substance: CARBOPLATIN
     Indication: Lung carcinoma cell type unspecified stage III
     Route: 065
  2. NELVUTAMIG [Suspect]
     Active Substance: NELVUTAMIG
     Indication: Lung carcinoma cell type unspecified stage III
     Route: 065
  3. NIVOLUMAB [Suspect]
     Active Substance: NIVOLUMAB
     Indication: Lung carcinoma cell type unspecified stage III
     Route: 065
  4. PEMETREXED [Suspect]
     Active Substance: PEMETREXED
     Indication: Lung carcinoma cell type unspecified stage III
     Route: 065

REACTIONS (1)
  - Cytokine release syndrome [Fatal]
